FAERS Safety Report 7329731-0 (Version None)
Quarter: 2011Q1

REPORT INFORMATION
  Report Type: 
  Country: None (occurrence: None)
  Receive Date: 20110303
  Receipt Date: 20110221
  Transmission Date: 20110831
  Serious: Yes (Hospitalization)
  Sender: FDA-Public Use
  Company Number: US-BAXTER-2011BH002086

PATIENT
  Sex: Male

DRUGS (3)
  1. DIANEAL [Suspect]
     Indication: PERITONEAL DIALYSIS
     Route: 033
  2. ANTIBIOTICS [Suspect]
     Indication: PYREXIA
     Dates: start: 20110101
  3. ANTIBIOTICS [Suspect]
     Indication: COUGH
     Dates: start: 20110101

REACTIONS (3)
  - COUGH [None]
  - COLITIS [None]
  - PYREXIA [None]
